FAERS Safety Report 7956013-6 (Version None)
Quarter: 2011Q4

REPORT INFORMATION
  Report Type: 
  Country: None (occurrence: None)
  Receive Date: 20111205
  Receipt Date: 20111124
  Transmission Date: 20120403
  Serious: Yes (Other)
  Sender: FDA-Public Use
  Company Number: NL-SP-2011-11461

PATIENT
  Sex: Female

DRUGS (2)
  1. TICE BCG [Suspect]
     Indication: BLADDER CANCER
     Dosage: NOT REPORTED
     Route: 065
  2. CHEMOTHERAPY [Suspect]
     Indication: BLADDER CANCER
     Dosage: 1 DOSE POST TURBT
     Route: 065

REACTIONS (2)
  - MALAISE [None]
  - CYSTITIS [None]
